FAERS Safety Report 4523003-5 (Version None)
Quarter: 2004Q4

REPORT INFORMATION
  Report Type: 
  Country: None (occurrence: None)
  Receive Date: 20041207
  Receipt Date: 20041207
  Transmission Date: 20050328
  Serious: No
  Sender: FDA-Public Use
  Company Number: None

PATIENT
  Age: 56 Year
  Sex: Female
  Weight: 58.0604 kg

DRUGS (1)
  1. DAYPRO [Suspect]
     Indication: ARTHRITIS
     Dosage: 600MG  2 X DAY ORAL
     Route: 048
     Dates: start: 20041110, end: 20041205

REACTIONS (2)
  - ERYTHEMA [None]
  - URTICARIA [None]
